FAERS Safety Report 24346491 (Version 1)
Quarter: 2024Q3

REPORT INFORMATION
  Report Type: Report from Study
  Country: CA (occurrence: CA)
  Receive Date: 20240921
  Receipt Date: 20240921
  Transmission Date: 20241017
  Serious: Yes (Other)
  Sender: ABBVIE
  Company Number: CA-ABBVIE-5886325

PATIENT
  Age: 65 Year
  Sex: Female

DRUGS (1)
  1. RINVOQ [Suspect]
     Active Substance: UPADACITINIB
     Indication: Psoriatic arthropathy
     Dosage: FORM STRENGTH: 15 MG
     Route: 048
     Dates: start: 20220825

REACTIONS (6)
  - Wrist fracture [Unknown]
  - Fall [Unknown]
  - Multiple fractures [Unknown]
  - Upper limb fracture [Not Recovered/Not Resolved]
  - Impaired healing [Unknown]
  - Injury [Unknown]

NARRATIVE: CASE EVENT DATE: 20230101
